FAERS Safety Report 21200757 (Version 1)
Quarter: 2022Q3

REPORT INFORMATION
  Report Type: Spontaneous
  Country: US (occurrence: None)
  Receive Date: 20220810
  Receipt Date: 20220810
  Transmission Date: 20221026
  Serious: Yes (Hospitalization)
  Sender: FDA-Public Use
  Company Number: None

PATIENT
  Age: 44 Year
  Sex: Female

DRUGS (1)
  1. ALYQ [Suspect]
     Active Substance: TADALAFIL
     Indication: Pulmonary arterial hypertension
     Dosage: FREQUENCY : DAILY;?40MG IN THE MORNING AND 20MG IN THE EVENING
     Route: 048
     Dates: start: 202003

REACTIONS (2)
  - Dyspnoea [None]
  - Fluid retention [None]

NARRATIVE: CASE EVENT DATE: 20220304
